APPROVED DRUG PRODUCT: EPIPEN E Z PEN
Active Ingredient: EPINEPHRINE
Strength: 0.3MG/DELIVERY
Dosage Form/Route: INJECTABLE;INTRAMUSCULAR
Application: N019430 | Product #003
Applicant: VIATRIS SPECIALTY LLC
Approved: Aug 3, 1995 | RLD: No | RS: No | Type: DISCN